FAERS Safety Report 4707508-X (Version None)
Quarter: 2005Q3

REPORT INFORMATION
  Report Type: 
  Country: None (occurrence: None)
  Receive Date: 20050706
  Receipt Date: 20040128
  Transmission Date: 20060218
  Serious: Yes (Hospitalization)
  Sender: FDA-Public Use
  Company Number: 200413292JP

PATIENT
  Age: 41 Year
  Sex: Female
  Weight: 47 kg

DRUGS (6)
  1. ARAVA [Suspect]
     Indication: RHEUMATOID ARTHRITIS
     Route: 048
     Dates: start: 20031002, end: 20040204
  2. PREDONINE [Concomitant]
     Indication: INFLAMMATION
     Route: 048
     Dates: end: 20040204
  3. VOLTAREN [Concomitant]
     Indication: ANALGESIC EFFECT
     Route: 048
     Dates: end: 20040204
  4. MARZULENE S [Concomitant]
     Indication: GASTRITIS
     Route: 048
     Dates: end: 20040204
  5. MARZULENE S [Concomitant]
     Indication: PROPHYLAXIS
     Route: 048
     Dates: end: 20040204
  6. LAC B [Concomitant]
     Indication: PROPHYLAXIS AGAINST DIARRHOEA
     Route: 048
     Dates: start: 20031016, end: 20040204

REACTIONS (2)
  - DIARRHOEA [None]
  - OVARIAN NEOPLASM [None]
